FAERS Safety Report 5068666-3 (Version None)
Quarter: 2006Q3

REPORT INFORMATION
  Report Type: 
  Country: None (occurrence: None)
  Receive Date: 20060802
  Receipt Date: 20060201
  Transmission Date: 20061208
  Serious: No
  Sender: FDA-Public Use
  Company Number: US-BRISTOL-MYERS SQUIBB COMPANY-13266945

PATIENT
  Age: 84 Year
  Sex: Male
  Weight: 77 kg

DRUGS (3)
  1. COUMADIN [Suspect]
     Indication: PULMONARY THROMBOSIS
     Dosage: DOSE INCREASED TO TWO, 4MG TABS 1/31/06, THEN ONE, 4MG TAB X 6 DAYS/WK AND TWO 4MG TABS ON 7TH DAY
     Dates: start: 20060113
  2. FLOMAX [Concomitant]
     Indication: GLAUCOMA
     Route: 047
  3. GLUCOSAMINE [Concomitant]

REACTIONS (1)
  - INTERNATIONAL NORMALISED RATIO DECREASED [None]
